FAERS Safety Report 13011645 (Version 1)
Quarter: 2016Q4

REPORT INFORMATION
  Report Type: Spontaneous
  Country: US (occurrence: US)
  Receive Date: 20161209
  Receipt Date: 20161209
  Transmission Date: 20170207
  Serious: No
  Sender: FDA-Public Use
  Company Number: US-JNJFOC-20161123117

PATIENT
  Age: 75 Year
  Sex: Male
  Weight: 81.65 kg

DRUGS (1)
  1. PANCREAZE [Suspect]
     Active Substance: PANCRELIPASE AMYLASE\PANCRELIPASE LIPASE\PANCRELIPASE PROTEASE
     Indication: PANCREATITIS
     Dosage: 4 CAPSULES/ CAPSULES/ 4200 USP UNITS OF LIPASE, 17,500 AMYLASE, AND10,000 PROTEASE/ BEFORE MEALS
     Route: 048
     Dates: start: 201611

REACTIONS (2)
  - Dysgeusia [Not Recovered/Not Resolved]
  - Oral discomfort [Not Recovered/Not Resolved]

NARRATIVE: CASE EVENT DATE: 201611
